FAERS Safety Report 15179191 (Version 7)
Quarter: 2019Q2

REPORT INFORMATION
  Report Type: Spontaneous
  Country: US (occurrence: US)
  Receive Date: 20180723
  Receipt Date: 20190424
  Transmission Date: 20190711
  Serious: Yes (Hospitalization, Other)
  Sender: FDA-Public Use
  Company Number: US-BRISTOL-MYERS SQUIBB COMPANY-BMS-2018-056017

PATIENT
  Age: 57 Year
  Sex: Female

DRUGS (2)
  1. ORENCIA [Suspect]
     Active Substance: ABATACEPT
     Indication: RHEUMATOID ARTHRITIS
     Dosage: 125 MG, QWK
     Route: 058
     Dates: start: 201806
  2. ORENCIA [Suspect]
     Active Substance: ABATACEPT
     Indication: PRODUCT USED FOR UNKNOWN INDICATION
     Dosage: 125 MG, QWK
     Route: 058
     Dates: start: 201806

REACTIONS (11)
  - Dehydration [Unknown]
  - Influenza [Unknown]
  - Hypersensitivity [Unknown]
  - Cardiac disorder [Unknown]
  - Product dose omission [Unknown]
  - Gait disturbance [Unknown]
  - Swelling [Unknown]
  - Dysphagia [Unknown]
  - Toothache [Unknown]
  - Vomiting [Unknown]
  - Sinusitis [Unknown]

NARRATIVE: CASE EVENT DATE: 20181022
